FAERS Safety Report 6884019-7 (Version None)
Quarter: 2010Q3

REPORT INFORMATION
  Report Type: 
  Country: None (occurrence: None)
  Receive Date: 20100729
  Receipt Date: 20100715
  Transmission Date: 20110219
  Serious: Yes (Other)
  Sender: FDA-Public Use
  Company Number: PHHY2010US43981

PATIENT
  Sex: Female
  Weight: 145 kg

DRUGS (12)
  1. EXJADE [Suspect]
     Indication: B-CELL LYMPHOMA
     Dosage: 1500 MG, QD
     Route: 048
     Dates: start: 20100603, end: 20100601
  2. ACYCLOVIR [Concomitant]
  3. CLONAZEPAM [Concomitant]
  4. DAPSONE [Concomitant]
  5. DIFLUCAN [Concomitant]
  6. MERCAPTOPURINE [Concomitant]
  7. METHOTREXATE [Concomitant]
  8. AMBIEN [Concomitant]
  9. MULTI-VITAMIN [Concomitant]
  10. VINCRISTINE [Concomitant]
  11. WELLBUTRIN [Concomitant]
  12. COMPAZINE [Concomitant]

REACTIONS (1)
  - STEM CELL TRANSPLANT [None]
